FAERS Safety Report 5229151-9 (Version None)
Quarter: 2007Q1

REPORT INFORMATION
  Report Type: 
  Country: None (occurrence: None)
  Receive Date: 20061201
  Receipt Date: 20061010
  Transmission Date: 20070707
  Serious: No
  Sender: FDA-Public Use
  Company Number: US200610002591

PATIENT

DRUGS (1)
  1. CYMBALTA [Suspect]
     Dosage: 60 MG UNK ORAL
     Route: 048
     Dates: start: 20050201, end: 20050214

REACTIONS (1)
  - ANGER [None]
